FAERS Safety Report 12242080 (Version 2)
Quarter: 2017Q1

REPORT INFORMATION
  Report Type: Spontaneous
  Country: US (occurrence: US)
  Receive Date: 20160406
  Receipt Date: 20170227
  Transmission Date: 20170428
  Serious: No
  Sender: FDA-Public Use
  Company Number: US-PFIZER INC-2016181914

PATIENT
  Age: 52 Year
  Sex: Female
  Weight: 106.5 kg

DRUGS (1)
  1. IBRANCE [Suspect]
     Active Substance: PALBOCICLIB
     Indication: BREAST CANCER METASTATIC
     Dosage: UNK
     Route: 048
     Dates: start: 201511, end: 2016

REACTIONS (6)
  - Breast cancer metastatic [Unknown]
  - Confusional state [Unknown]
  - Fatigue [Unknown]
  - Disease progression [Unknown]
  - Back pain [Unknown]
  - Dizziness [Unknown]
